FAERS Safety Report 11030512 (Version 1)
Quarter: 2015Q2

REPORT INFORMATION
  Report Type: Spontaneous
  Country: US (occurrence: None)
  Receive Date: 20150414
  Receipt Date: 20150414
  Transmission Date: 20150821
  Serious: Yes (Hospitalization)
  Sender: FDA-Public Use
  Company Number: None

PATIENT
  Age: 51 Year
  Sex: Male
  Weight: 102.5 kg

DRUGS (1)
  1. PRAZOSIN [Suspect]
     Active Substance: PRAZOSIN
     Indication: NIGHTMARE
     Route: 048
     Dates: start: 20140917, end: 20140924

REACTIONS (5)
  - Dizziness [None]
  - Headache [None]
  - Presyncope [None]
  - Bradycardia [None]
  - Hypotension [None]

NARRATIVE: CASE EVENT DATE: 20140923
